FAERS Safety Report 10039177 (Version 1)
Quarter: 2014Q1

REPORT INFORMATION
  Report Type: Spontaneous
  Country: US (occurrence: US)
  Receive Date: 20140326
  Receipt Date: 20140326
  Transmission Date: 20141002
  Serious: No
  Sender: FDA-Public Use
  Company Number: US-009507513-1403USA011735

PATIENT
  Sex: Female
  Weight: 62.59 kg

DRUGS (5)
  1. MIRALAX [Suspect]
     Indication: PRODUCT USED FOR UNKNOWN INDICATION
     Dosage: UNK, UNKNOWN
     Route: 048
     Dates: start: 201312, end: 201401
  2. TYLENOL ARTHRITIS PAIN [Concomitant]
     Indication: ARTHRITIS
     Dosage: UNK, UNKNOWN
  3. SIMVASTATIN [Concomitant]
     Indication: BLOOD CHOLESTEROL INCREASED
     Dosage: UNK, UNKNOWN
  4. MUCINEX [Concomitant]
     Indication: SINUS DISORDER
     Dosage: UNK, UNKNOWN
  5. ALEVE [Concomitant]
     Indication: SINUS DISORDER
     Dosage: UNK, UNKNOWN

REACTIONS (3)
  - Inappropriate schedule of drug administration [Unknown]
  - Product odour abnormal [Unknown]
  - Product taste abnormal [Unknown]
